FAERS Safety Report 6885259-3 (Version None)
Quarter: 2010Q3

REPORT INFORMATION
  Report Type: 
  Country: None (occurrence: None)
  Receive Date: 20100729
  Receipt Date: 20100728
  Transmission Date: 20110219
  Serious: Yes (Other)
  Sender: FDA-Public Use
  Company Number: AU-AMGEN-QUU424179

PATIENT

DRUGS (4)
  1. NEULASTA [Suspect]
     Indication: CHEMOTHERAPY
     Route: 065
     Dates: start: 20100101
  2. TAXOTERE [Concomitant]
     Dates: start: 20100416
  3. ADRIAMYCIN PFS [Concomitant]
     Dates: start: 20100416
  4. CYCLOPHOSPHAMIDE [Concomitant]
     Dates: start: 20100416

REACTIONS (4)
  - FALL [None]
  - FEBRILE NEUTROPENIA [None]
  - GASTROINTESTINAL DISORDER [None]
  - THERAPEUTIC RESPONSE DECREASED [None]
